FAERS Safety Report 6406400-2 (Version None)
Quarter: 2009Q4

REPORT INFORMATION
  Report Type: 
  Country: None (occurrence: None)
  Receive Date: 20091014
  Receipt Date: 20091007
  Transmission Date: 20100525
  Serious: Yes (Other)
  Sender: FDA-Public Use
  Company Number: 2009008412

PATIENT
  Age: 35 Year
  Sex: Male

DRUGS (4)
  1. TRISENOX [Suspect]
     Indication: ACUTE LEUKAEMIA
     Dosage: (10 MG, INTRAVENOUS
     Route: 042
     Dates: start: 20090518, end: 20090612
  2. CYTARABINE [Suspect]
     Indication: LEUKAEMIC INFILTRATION EXTRAMEDULLARY
     Dosage: 40 MG TOTAL DAILY DOSE (40 MG TOTAL DAILY DOSE (40 MG), INTRATHECAL
     Route: 037
     Dates: start: 20090221, end: 20090509
  3. METHOTREXATE [Suspect]
     Indication: LEUKAEMIC INFILTRATION EXTRAMEDULLARY
     Dosage: 15 MG TOTAL DAILY DOSE (15 MG), INTRATHECAL
     Route: 042
     Dates: start: 20090221, end: 20090516
  4. PREDNISOLONE SODIUM SUCINATE (PREDNISOLONE SODIUM SUCCINATE) [Suspect]
     Indication: LEUKAEMIC INFILTRATION EXTRAMEDULLARY
     Dosage: 20 MG TOTAL DAILY DOSE (20 MG), INTATHECAL
     Route: 042
     Dates: start: 20090221, end: 20090516

REACTIONS (10)
  - DYSSTASIA [None]
  - FEELING ABNORMAL [None]
  - GAIT DISTURBANCE [None]
  - HYPOAESTHESIA [None]
  - MONOPLEGIA [None]
  - MUSCULAR WEAKNESS [None]
  - NERVOUS SYSTEM DISORDER [None]
  - PARALYSIS [None]
  - PYRAMIDAL TRACT SYNDROME [None]
  - SENSORY DISTURBANCE [None]
